FAERS Safety Report 8180459-7 (Version None)
Quarter: 2012Q1

REPORT INFORMATION
  Report Type: 
  Country: None (occurrence: None)
  Receive Date: 20120229
  Receipt Date: 20120216
  Transmission Date: 20120608
  Serious: Yes (Death, Hospitalization)
  Sender: FDA-Public Use
  Company Number: LTI2010A00252

PATIENT
  Age: 73 Year
  Sex: Female

DRUGS (1)
  1. ACTOS [Suspect]
     Indication: TYPE 2 DIABETES MELLITUS
     Dosage: 45 MG (45 MG, 1 D), ORAL
     Route: 048
     Dates: start: 20040101, end: 20101127

REACTIONS (4)
  - RENAL CANCER [None]
  - CALCULUS URETERIC [None]
  - METASTASES TO BONE [None]
  - BLADDER TRANSITIONAL CELL CARCINOMA STAGE III [None]
